FAERS Safety Report 10989038 (Version 1)
Quarter: 2015Q2

REPORT INFORMATION
  Report Type: Spontaneous
  Country: TW (occurrence: TW)
  Receive Date: 20150406
  Receipt Date: 20150406
  Transmission Date: 20150821
  Serious: Yes (Death, Hospitalization)
  Sender: FDA-Public Use
  Company Number: TW-AMGEN-TWNSP2015027458

PATIENT
  Age: 49 Year
  Sex: Female

DRUGS (6)
  1. FLURBIPROFEN. [Concomitant]
     Active Substance: FLURBIPROFEN
     Indication: PSORIATIC ARTHROPATHY
     Dosage: 40 MG, AS NEEDED
  2. STROCAIN                           /00130301/ [Concomitant]
     Dosage: 1 DF, 3X/DAY
  3. ARCOXIA [Concomitant]
     Active Substance: ETORICOXIB
     Indication: PSORIATIC ARTHROPATHY
     Dosage: 90 MG, 1X/DAY
  4. TRAMTOR [Concomitant]
     Indication: PSORIATIC ARTHROPATHY
     Dosage: 150 MG, 2X/DAY
  5. ENBREL [Suspect]
     Active Substance: ETANERCEPT
     Indication: PSORIATIC ARTHROPATHY
     Dosage: 25 MG, 2X/WEEK
     Route: 058
     Dates: start: 20130509, end: 20150218
  6. ARHEUMA [Concomitant]
     Indication: PSORIATIC ARTHROPATHY
     Dosage: 20 MG, 1X/DAY

REACTIONS (3)
  - Bacteraemia [Fatal]
  - Septic shock [Fatal]
  - Subcutaneous abscess [Fatal]

NARRATIVE: CASE EVENT DATE: 20150220
